FAERS Safety Report 5168205-2 (Version None)
Quarter: 2006Q4

REPORT INFORMATION
  Report Type: 
  Country: None (occurrence: None)
  Receive Date: 20061208
  Receipt Date: 20061116
  Transmission Date: 20070319
  Serious: Yes (Death, Hospitalization)
  Sender: FDA-Public Use
  Company Number: 2006AC02161

PATIENT
  Age: 58 Year
  Sex: Female
  Weight: 80 kg

DRUGS (5)
  1. SEROQUEL [Suspect]
     Indication: BIPOLAR DISORDER
     Route: 048
  2. ZYPREXA [Suspect]
     Indication: BIPOLAR DISORDER
     Dates: start: 20060930, end: 20061007
  3. LITHIUM CARBONATE [Suspect]
     Indication: BIPOLAR I DISORDER
  4. ETUMINE [Concomitant]
  5. RISPERDAL [Concomitant]

REACTIONS (2)
  - DIABETES INSIPIDUS [None]
  - HYPERNATRAEMIA [None]
